FAERS Safety Report 5811184-2 (Version None)
Quarter: 2008Q3

REPORT INFORMATION
  Report Type: 
  Country: None (occurrence: None)
  Receive Date: 20080711
  Receipt Date: 20080409
  Transmission Date: 20090109
  Serious: No
  Sender: FDA-Public Use
  Company Number: 2008BM000074

PATIENT
  Age: 10 Year
  Sex: Male
  Weight: 35.4 kg

DRUGS (1)
  1. KUVAN [Suspect]
     Indication: PHENYLKETONURIA
     Dosage: 700 MG;QD;PO
     Route: 048

REACTIONS (1)
  - PAIN IN EXTREMITY [None]
